FAERS Safety Report 6390759-9 (Version None)
Quarter: 2009Q4

REPORT INFORMATION
  Report Type: 
  Country: None (occurrence: None)
  Receive Date: 20091001
  Receipt Date: 20090706
  Transmission Date: 20100525
  Serious: No
  Sender: FDA-Public Use
  Company Number: 1000007242

PATIENT
  Age: 78 Year
  Sex: Female

DRUGS (5)
  1. BYSTOLIC [Suspect]
     Indication: HYPERTENSION
     Dosage: 2.5 MG (2.5 MG, 1 IN 1 D), ORAL, 5 MG (5 MG, 1 IN 1 D), ORAL,  10 MG (5 MG,  2 IN 1 D), ORAL
     Route: 048
     Dates: start: 20090615, end: 20090621
  2. BYSTOLIC [Suspect]
     Indication: HYPERTENSION
     Dosage: 2.5 MG (2.5 MG, 1 IN 1 D), ORAL, 5 MG (5 MG, 1 IN 1 D), ORAL,  10 MG (5 MG,  2 IN 1 D), ORAL
     Route: 048
     Dates: start: 20090622
  3. THYROID TAB [Concomitant]
  4. ATIVAN [Concomitant]
  5. LOTENSIN [Concomitant]

REACTIONS (1)
  - OEDEMA PERIPHERAL [None]
